FAERS Safety Report 7892682-7 (Version None)
Quarter: 2011Q4

REPORT INFORMATION
  Report Type: 
  Country: None (occurrence: None)
  Receive Date: 20111102
  Receipt Date: 20111026
  Transmission Date: 20120403
  Serious: Yes (Death, Hospitalization)
  Sender: FDA-Public Use
  Company Number: 2008-187454-NL

PATIENT
  Age: 21 Year
  Sex: Female
  Weight: 58.9676 kg

DRUGS (6)
  1. NUVARING [Suspect]
     Indication: CONTRACEPTION
     Dosage: 1 DF; QM; VAG
     Route: 067
     Dates: start: 20060725, end: 20061113
  2. MYCOPHENOLATE MOFETIL (CELLCEPT) [Suspect]
     Indication: PRODUCT USED FOR UNKNOWN INDICATION
     Dates: end: 20070310
  3. FLUCONAZOLE [Concomitant]
  4. METRONIDAZOLE [Concomitant]
  5. PREDNISONE [Suspect]
     Indication: TRANSPLANT REJECTION
     Dates: start: 20001101
  6. HUMALOG [Concomitant]

REACTIONS (33)
  - CARDIAC ARREST [None]
  - ARTERIAL THROMBOSIS [None]
  - PULSELESS ELECTRICAL ACTIVITY [None]
  - SINUS TACHYCARDIA [None]
  - PERIPHERAL ISCHAEMIA [None]
  - DIABETES MELLITUS INADEQUATE CONTROL [None]
  - ATRIOVENTRICULAR BLOCK [None]
  - DIABETIC KETOACIDOSIS [None]
  - HYPOXIC-ISCHAEMIC ENCEPHALOPATHY [None]
  - CARDIAC FAILURE CONGESTIVE [None]
  - CORONARY ARTERY OCCLUSION [None]
  - VENTRICULAR TACHYCARDIA [None]
  - DYSPHAGIA [None]
  - MYOPATHY [None]
  - HAEMATOCRIT DECREASED [None]
  - IMMUNOSUPPRESSION [None]
  - MYOCARDIAL INFARCTION [None]
  - LEUKOPENIA [None]
  - MEDICAL DEVICE COMPLICATION [None]
  - CARDIAC FAILURE [None]
  - BRAIN DEATH [None]
  - ENTEROCOCCAL INFECTION [None]
  - CONSTIPATION [None]
  - HYPERTENSION [None]
  - NEUROPATHY PERIPHERAL [None]
  - PULMONARY HYPERTENSION [None]
  - PERONEAL NERVE PALSY [None]
  - TRANSPLANT REJECTION [None]
  - HEART TRANSPLANT [None]
  - CARDIOGENIC SHOCK [None]
  - CARDIAC TAMPONADE [None]
  - UNRESPONSIVE TO STIMULI [None]
  - INSOMNIA [None]
